FAERS Safety Report 9194888 (Version 1)
Quarter: 2013Q1

REPORT INFORMATION
  Report Type: Spontaneous
  Country: US (occurrence: US)
  Receive Date: 20130328
  Receipt Date: 20130328
  Transmission Date: 20140127
  Serious: No
  Sender: FDA-Public Use
  Company Number: US-ALLERGAN-1205102US

PATIENT
  Sex: Female

DRUGS (3)
  1. LUMIGAN [Suspect]
     Indication: PRODUCT USED FOR UNKNOWN INDICATION
     Route: 047
  2. COMBIGAN [Suspect]
     Indication: PRODUCT USED FOR UNKNOWN INDICATION
     Route: 047
  3. TRAVATAN [Suspect]
     Indication: PRODUCT USED FOR UNKNOWN INDICATION
     Route: 047

REACTIONS (4)
  - Eye swelling [Unknown]
  - Skin exfoliation [Unknown]
  - Visual acuity reduced [Unknown]
  - Eyelid oedema [Unknown]
